FAERS Safety Report 8346563-5 (Version None)
Quarter: 2012Q2

REPORT INFORMATION
  Report Type: 
  Country: None (occurrence: None)
  Receive Date: 20120509
  Receipt Date: 20120430
  Transmission Date: 20120825
  Serious: Yes (Hospitalization, Other)
  Sender: FDA-Public Use
  Company Number: PHHY2012DE028113

PATIENT
  Sex: Male
  Weight: 82 kg

DRUGS (10)
  1. DIOVAN HCT [Suspect]
     Dosage: 160/12.5 MG PER DAY
     Route: 048
     Dates: start: 20081209, end: 20101208
  2. METOPROLOL SUCCINATE [Concomitant]
     Dosage: 47.5 MG, PER DAY
     Route: 048
     Dates: start: 20000808
  3. DURANIFIN [Concomitant]
     Dosage: 20 MG, UNK
     Route: 048
     Dates: start: 19970415
  4. ATORVASTATIN CALCIUM [Concomitant]
     Dosage: 10 MG, QD
     Dates: start: 20010514, end: 20030716
  5. ASPIRIN [Concomitant]
     Indication: MULTIPLE SCLEROSIS
     Dosage: 100 MG/D
     Route: 048
     Dates: start: 20000101
  6. TAMSULOSIN HCL [Concomitant]
     Indication: BENIGN PROSTATIC HYPERPLASIA
     Dosage: 0.4 MG/D
     Route: 048
     Dates: start: 20070916
  7. PLATELET AGGREGATION INHIBITORS [Concomitant]
  8. DIOVAN HCT [Suspect]
     Dosage: 160/12.5 MG PER DAY
     Route: 048
     Dates: start: 20110810
  9. RASILEZ [Suspect]
     Indication: HYPERTENSION
     Dosage: 150 MG/D
     Route: 048
     Dates: start: 20090422, end: 20110809
  10. CALCIUM CHANNEL BLOCKERS [Concomitant]
     Dates: start: 20100823

REACTIONS (5)
  - CAROTID ARTERY STENOSIS [None]
  - C-REACTIVE PROTEIN INCREASED [None]
  - DYSPNOEA [None]
  - LEFT VENTRICULAR HYPERTROPHY [None]
  - BLOOD PRESSURE INCREASED [None]
